FAERS Safety Report 19841069 (Version 1)
Quarter: 2021Q3

REPORT INFORMATION
  Report Type: Spontaneous
  Country: US (occurrence: US)
  Receive Date: 20210915
  Receipt Date: 20210915
  Transmission Date: 20211014
  Serious: No
  Sender: FDA-Public Use
  Company Number: NVSC2021US209254

PATIENT
  Sex: Female

DRUGS (1)
  1. TEMOVATE [Suspect]
     Active Substance: CLOBETASOL PROPIONATE
     Indication: RASH
     Dosage: 30 G
     Route: 065

REACTIONS (1)
  - Drug ineffective [Unknown]
